FAERS Safety Report 5545631-0 (Version None)
Quarter: 2007Q4

REPORT INFORMATION
  Report Type: 
  Country: None (occurrence: None)
  Receive Date: 20071207
  Receipt Date: 20071205
  Transmission Date: 20080405
  Serious: Yes (Death)
  Sender: FDA-Public Use
  Company Number: 2007S1000229

PATIENT
  Age: 10 Day
  Sex: Female
  Weight: 0.86 kg

DRUGS (9)
  1. NITRIC OXIDE [Suspect]
     Indication: LUNG DISORDER
     Dosage: 5 PPM; CONT;INH
     Route: 055
     Dates: start: 20071126, end: 20071205
  2. PLASMA [Concomitant]
  3. BLOOD CELLS, PACKED HUMAN [Concomitant]
  4. ADRENALINE [Concomitant]
  5. MIDAZOLAM HCL [Concomitant]
  6. SODIUM BICARBONATE [Concomitant]
  7. INSULIN [Concomitant]
  8. DOPAMINE HCL [Concomitant]
  9. FENTANYL [Concomitant]

REACTIONS (3)
  - BRADYCARDIA [None]
  - NEONATAL DISORDER [None]
  - PULMONARY HAEMORRHAGE [None]
